FAERS Safety Report 15811744 (Version 2)
Quarter: 2019Q1

REPORT INFORMATION
  Report Type: Spontaneous
  Country: US (occurrence: US)
  Receive Date: 20190111
  Receipt Date: 20190115
  Transmission Date: 20190417
  Serious: No
  Sender: FDA-Public Use
  Company Number: US-PFIZER INC-2019013974

PATIENT
  Age: 52 Year
  Sex: Male
  Weight: 63.5 kg

DRUGS (1)
  1. VIAGRA [Suspect]
     Active Substance: SILDENAFIL CITRATE
     Indication: PROSTATIC DISORDER
     Dosage: 50 MG, DAILY
     Route: 048

REACTIONS (3)
  - Chromatopsia [Recovered/Resolved]
  - Disturbance in sexual arousal [Unknown]
  - Drug ineffective for unapproved indication [Unknown]
